FAERS Safety Report 7323224-2 (Version None)
Quarter: 2011Q1

REPORT INFORMATION
  Report Type: 
  Country: None (occurrence: None)
  Receive Date: 20110217
  Receipt Date: 20110207
  Transmission Date: 20110831
  Serious: No
  Sender: FDA-Public Use
  Company Number: 027043

PATIENT
  Sex: Male
  Weight: 75 kg

DRUGS (14)
  1. LACOSAMIDE [Suspect]
     Indication: EPILEPSY
  2. MCP [Concomitant]
  3. METFORMIN [Concomitant]
  4. THIAMINE HCL [Concomitant]
  5. ACETYLCYSTEINE [Concomitant]
  6. NEXIUM [Concomitant]
  7. SULTANOL [Concomitant]
  8. ATACAND HCT [Concomitant]
  9. SCOPODERM [Concomitant]
  10. FRAGMIN [Concomitant]
  11. AMLODIPINE [Concomitant]
  12. KALIUM [Concomitant]
  13. PREDNISOLONE [Concomitant]
  14. FENTANYL [Concomitant]

REACTIONS (17)
  - BLOOD CREATINE PHOSPHOKINASE MB INCREASED [None]
  - UNEVALUABLE EVENT [None]
  - BLOOD SODIUM DECREASED [None]
  - MULTI-ORGAN FAILURE [None]
  - DEHYDRATION [None]
  - HAEMOGLOBIN DECREASED [None]
  - RED BLOOD CELL COUNT DECREASED [None]
  - C-REACTIVE PROTEIN INCREASED [None]
  - RED CELL DISTRIBUTION WIDTH INCREASED [None]
  - GENERAL PHYSICAL HEALTH DETERIORATION [None]
  - DISORIENTATION [None]
  - ACUTE PRERENAL FAILURE [None]
  - HAEMATOCRIT DECREASED [None]
  - WHITE BLOOD CELL COUNT INCREASED [None]
  - WHITE BLOOD CELLS URINE POSITIVE [None]
  - PNEUMONIA ASPIRATION [None]
  - BLOOD FIBRINOGEN INCREASED [None]
